FAERS Safety Report 7343196-4 (Version None)
Quarter: 2011Q1

REPORT INFORMATION
  Report Type: 
  Country: None (occurrence: None)
  Receive Date: 20110310
  Receipt Date: 20110302
  Transmission Date: 20110831
  Serious: Yes (Hospitalization)
  Sender: FDA-Public Use
  Company Number: PHHO2011FR03921

PATIENT
  Sex: Female
  Weight: 114 kg

DRUGS (1)
  1. STI571/CGP57148B [Suspect]
     Indication: CHRONIC MYELOID LEUKAEMIA
     Dosage: 400 MG, QD
     Route: 048
     Dates: start: 20080213

REACTIONS (3)
  - CONCOMITANT DISEASE PROGRESSION [None]
  - BACK PAIN [None]
  - INTERVERTEBRAL DISC PROTRUSION [None]
